FAERS Safety Report 9055716 (Version 1)
Quarter: 2013Q1

REPORT INFORMATION
  Report Type: Report from Study
  Country: DE (occurrence: DE)
  Receive Date: 20130206
  Receipt Date: 20130206
  Transmission Date: 20140127
  Serious: Yes (Death, Hospitalization)
  Sender: FDA-Public Use
  Company Number: DE-ROCHE-1187326

PATIENT
  Sex: Female

DRUGS (3)
  1. BEVACIZUMAB [Suspect]
     Indication: BRONCHIAL CARCINOMA
     Route: 065
     Dates: end: 20090106
  2. PACLITAXEL [Suspect]
     Indication: BRONCHIAL CARCINOMA
     Route: 065
     Dates: end: 20090106
  3. CARBOPLATIN [Suspect]
     Indication: BRONCHIAL CARCINOMA
     Route: 065
     Dates: end: 20090106

REACTIONS (5)
  - Respiratory failure [Fatal]
  - Pneumonia [Not Recovered/Not Resolved]
  - Febrile neutropenia [Not Recovered/Not Resolved]
  - Leukopenia [Not Recovered/Not Resolved]
  - Thrombocytopenia [Not Recovered/Not Resolved]
